FAERS Safety Report 4837028-3 (Version None)
Quarter: 2005Q4

REPORT INFORMATION
  Report Type: 
  Country: None (occurrence: None)
  Receive Date: 20051121
  Receipt Date: 20051107
  Transmission Date: 20060501
  Serious: Yes (Hospitalization)
  Sender: FDA-Public Use
  Company Number: HQWYE459509NOV05

PATIENT
  Age: 53 Year
  Sex: Female

DRUGS (9)
  1. EFFEXOR [Suspect]
     Indication: ANXIETY
     Dosage: 3/4 OF A 75 MG TABLET, FREQUENCY ORAL-SEE IMAGE
     Route: 048
     Dates: start: 20050101, end: 20050101
  2. EFFEXOR [Suspect]
     Indication: DEPRESSION
     Dosage: 3/4 OF A 75 MG TABLET, FREQUENCY ORAL-SEE IMAGE
     Route: 048
     Dates: start: 20050101, end: 20050101
  3. EFFEXOR [Suspect]
     Indication: ANXIETY
     Dosage: 3/4 OF A 75 MG TABLET, FREQUENCY ORAL-SEE IMAGE
     Route: 048
     Dates: start: 20050101
  4. EFFEXOR [Suspect]
     Indication: DEPRESSION
     Dosage: 3/4 OF A 75 MG TABLET, FREQUENCY ORAL-SEE IMAGE
     Route: 048
     Dates: start: 20050101
  5. TRAMADOL HCL [Concomitant]
  6. RANADEINE (CODEINE PHOSPHATE/PARACETAMOL) [Concomitant]
  7. FLIOFEM (ESTRADIOL/NORETHISTERONE ACETATE) [Concomitant]
  8. LORAZEPAM [Concomitant]
  9. IMOVANE (ZOPICLONE) [Concomitant]

REACTIONS (8)
  - ANXIETY [None]
  - ARTHRALGIA [None]
  - CHOLECYSTECTOMY [None]
  - MYALGIA [None]
  - NAUSEA [None]
  - PRURITUS [None]
  - SALIVARY HYPERSECRETION [None]
  - WEIGHT DECREASED [None]
